FAERS Safety Report 9716674 (Version 2)
Quarter: 2013Q4

REPORT INFORMATION
  Report Type: Spontaneous
  Country: GB (occurrence: GB)
  Receive Date: 20131127
  Receipt Date: 20131127
  Transmission Date: 20140711
  Serious: Yes (Other)
  Sender: FDA-Public Use
  Company Number: GB-NOVOPROD-391028

PATIENT
  Sex: Female

DRUGS (4)
  1. VAGIFEM [Suspect]
     Indication: HOT FLUSH
     Dosage: 1 MG, UNK
     Route: 067
  2. VAGIFEM [Suspect]
     Indication: NIGHT SWEATS
  3. VAGIFEM [Suspect]
     Indication: HORMONE REPLACEMENT THERAPY
  4. ANGELIQ [Suspect]
     Indication: HORMONE REPLACEMENT THERAPY
     Dosage: UNK
     Route: 048

REACTIONS (5)
  - Genital haemorrhage [Unknown]
  - Menstruation irregular [Unknown]
  - Hot flush [Unknown]
  - Night sweats [Unknown]
  - Drug ineffective [Unknown]
